FAERS Safety Report 18922751 (Version 1)
Quarter: 2021Q1

REPORT INFORMATION
  Report Type: Spontaneous
  Country: IN (occurrence: IN)
  Receive Date: 20210222
  Receipt Date: 20210222
  Transmission Date: 20210420
  Serious: Yes (Death, Hospitalization)
  Sender: FDA-Public Use
  Company Number: IN-MYLANLABS-2021M1010774

PATIENT
  Age: 40 Year
  Sex: Male

DRUGS (6)
  1. DEXAMETHASONE. [Suspect]
     Active Substance: DEXAMETHASONE
     Indication: CELLULITIS
  2. METHYLPREDNISOLONE. [Suspect]
     Active Substance: METHYLPREDNISOLONE
     Indication: CELLULITIS
  3. METHYLPREDNISOLONE. [Suspect]
     Active Substance: METHYLPREDNISOLONE
     Indication: ACUTE KIDNEY INJURY
     Dosage: 1 GRAM, PULSE THERAPY
     Route: 065
  4. DEXAMETHASONE. [Suspect]
     Active Substance: DEXAMETHASONE
     Indication: DERMATOMYOSITIS
     Dosage: 1 MILLIGRAM/KILOGRAM, QD...
     Route: 042
  5. DEXAMETHASONE. [Suspect]
     Active Substance: DEXAMETHASONE
     Indication: ACUTE KIDNEY INJURY
     Dosage: 0.5 MILLIGRAM/KILOGRAM, QD...
     Route: 042
  6. METHYLPREDNISOLONE. [Suspect]
     Active Substance: METHYLPREDNISOLONE
     Indication: DERMATOMYOSITIS
     Dosage: 4 MILLIGRAM, QD
     Route: 065

REACTIONS (7)
  - Staphylococcal infection [Fatal]
  - Septic arthritis staphylococcal [Fatal]
  - Arthritis [Fatal]
  - Endocarditis [Fatal]
  - Glomerulonephritis [Fatal]
  - Staphylococcal sepsis [Fatal]
  - Cardiac failure congestive [Fatal]
